FAERS Safety Report 10195102 (Version 1)
Quarter: 2014Q2

REPORT INFORMATION
  Report Type: Spontaneous
  Country: US (occurrence: US)
  Receive Date: 20140526
  Receipt Date: 20140526
  Transmission Date: 20141212
  Serious: No
  Sender: FDA-Public Use
  Company Number: US-ASTRAZENECA-2014SE33404

PATIENT
  Age: 82 Year
  Sex: Male
  Weight: 72.6 kg

DRUGS (6)
  1. PULMICORT FLEXHALER [Suspect]
     Indication: ASTHMA
     Dosage: 90 MCG, 1 PUFF BID
     Route: 055
     Dates: start: 2008
  2. PULMICORT FLEXHALER [Suspect]
     Indication: CHRONIC OBSTRUCTIVE PULMONARY DISEASE
     Dosage: 90 MCG, 1 PUFF BID
     Route: 055
     Dates: start: 2008
  3. LISINOPRIL [Suspect]
     Indication: BLOOD PRESSURE ABNORMAL
     Route: 048
     Dates: start: 2012
  4. ALBUTEROL [Concomitant]
     Indication: ASTHMA
     Dosage: NR PRN
  5. SIMVASTATIN [Concomitant]
     Indication: ARTERIAL DISORDER
  6. ASPIRIN [Concomitant]
     Indication: ANTICOAGULANT THERAPY

REACTIONS (5)
  - Ageusia [Unknown]
  - Decreased appetite [Unknown]
  - Arterial occlusive disease [Unknown]
  - Anosmia [Unknown]
  - Blood pressure abnormal [Unknown]
